FAERS Safety Report 23068395 (Version 1)
Quarter: 2023Q4

REPORT INFORMATION
  Report Type: Spontaneous
  Country: US (occurrence: None)
  Receive Date: 20231016
  Receipt Date: 20231016
  Transmission Date: 20240109
  Serious: No
  Sender: FDA-Public Use
  Company Number: US-ARIS GLOBAL-ADM202306-002581

PATIENT
  Age: 79 Year
  Sex: Male

DRUGS (11)
  1. GOCOVRI [Suspect]
     Active Substance: AMANTADINE
     Indication: Parkinson^s disease
     Route: 048
     Dates: start: 202105
  2. GOCOVRI [Suspect]
     Active Substance: AMANTADINE
  3. SINEMET [Concomitant]
     Active Substance: CARBIDOPA\LEVODOPA
     Dosage: EACH DF CONTAINS 25-100MG
  4. RYTARY [Concomitant]
     Active Substance: CARBIDOPA\LEVODOPA
     Dosage: EACH DF CONTAINS 48.15-195MG
  5. AMARYL [Concomitant]
     Active Substance: GLIMEPIRIDE
     Dosage: 2MG
  6. LATANOPROST [Concomitant]
     Active Substance: LATANOPROST
     Dosage: 0.005% OPHTHALMIC SOLUTION 2.5ML
  7. LIPITOR [Concomitant]
     Active Substance: ATORVASTATIN CALCIUM
     Dosage: 10MG
  8. Cosopt Ocumeter Plus ophthalmic [Concomitant]
     Dosage: OPHTHALMIC SOLUTION10ML
  9. LISINOPRIL [Concomitant]
     Active Substance: LISINOPRIL
     Dosage: 10MG
  10. NEURONTIN [Concomitant]
     Active Substance: GABAPENTIN
     Dosage: 300MG
  11. REMERON [Concomitant]
     Active Substance: MIRTAZAPINE
     Dosage: 30MG

REACTIONS (2)
  - Balance disorder [Unknown]
  - Dizziness [Unknown]
